FAERS Safety Report 6976221-0 (Version None)
Quarter: 2010Q3

REPORT INFORMATION
  Report Type: 
  Country: None (occurrence: None)
  Receive Date: 20100910
  Receipt Date: 20100810
  Transmission Date: 20110219
  Serious: No
  Sender: FDA-Public Use
  Company Number: US-BAYER-201019692BCC

PATIENT
  Age: 26 Year
  Sex: Female
  Weight: 77 kg

DRUGS (3)
  1. ALEVE [Suspect]
     Indication: HEADACHE
     Route: 048
  2. ALEVE [Suspect]
     Dosage: TOTAL DAILY DOSE: 440 MG  UNIT DOSE: 220 MG
     Route: 048
     Dates: start: 20100701
  3. MULTI-VITAMINS [Suspect]
     Indication: VITAMIN SUPPLEMENTATION
     Dosage: TOTAL DAILY DOSE: 1 DF
     Route: 048
     Dates: start: 20100101, end: 20100701

REACTIONS (2)
  - HEADACHE [None]
  - VOMITING [None]
